APPROVED DRUG PRODUCT: KETOROLAC TROMETHAMINE
Active Ingredient: KETOROLAC TROMETHAMINE
Strength: 10MG
Dosage Form/Route: TABLET;ORAL
Application: A216759 | Product #001 | TE Code: AB
Applicant: BIONPHARMA INC
Approved: Feb 23, 2023 | RLD: No | RS: No | Type: RX